FAERS Safety Report 5055225-1 (Version None)
Quarter: 2006Q3

REPORT INFORMATION
  Report Type: 
  Country: None (occurrence: None)
  Receive Date: 20060714
  Receipt Date: 20060710
  Transmission Date: 20061208
  Serious: Yes (Death, Hospitalization, Disabling)
  Sender: FDA-Public Use
  Company Number: HQWYE702610JUL06

PATIENT
  Age: 85 Year
  Sex: Male

DRUGS (2)
  1. CORDARONE [Suspect]
     Indication: ATRIAL FIBRILLATION
     Dosage: 200 MG 1X PER 1 DAY
     Route: 048
     Dates: start: 20041109, end: 20060425
  2. CORDARONE [Suspect]
     Indication: ATRIAL FLUTTER
     Dosage: 200 MG 1X PER 1 DAY
     Route: 048
     Dates: start: 20041109, end: 20060425

REACTIONS (6)
  - ACUTE PULMONARY OEDEMA [None]
  - BRONCHITIS ACUTE [None]
  - BRONCHOSPASM [None]
  - CARDIOGENIC SHOCK [None]
  - HYPERTHYROIDISM [None]
  - RESTRICTIVE PULMONARY DISEASE [None]
